FAERS Safety Report 9766352 (Version 1)
Quarter: 2013Q4

REPORT INFORMATION
  Report Type: Spontaneous
  Country: US (occurrence: US)
  Receive Date: 20131217
  Receipt Date: 20131217
  Transmission Date: 20140711
  Serious: No
  Sender: FDA-Public Use
  Company Number: US-GLAXOSMITHKLINE-A1026437A

PATIENT
  Age: 60 Year
  Sex: Male
  Weight: 95 kg

DRUGS (7)
  1. VOTRIENT [Suspect]
     Indication: RENAL CELL CARCINOMA
     Dosage: 600MG PER DAY
     Route: 048
     Dates: start: 20130517
  2. AMLODIPINE [Concomitant]
     Dosage: 5MG PER DAY
  3. LIPITOR [Concomitant]
  4. BABY ASPIRIN [Concomitant]
  5. PLAVIX [Concomitant]
  6. LECITHIN [Concomitant]
  7. COQ-10 [Concomitant]

REACTIONS (11)
  - Blood pressure diastolic increased [Unknown]
  - Hypertension [Unknown]
  - Skin disorder [Unknown]
  - Hypotrichosis [Unknown]
  - Hair colour changes [Unknown]
  - Fatigue [Not Recovered/Not Resolved]
  - Tendonitis [Unknown]
  - Pain in extremity [Unknown]
  - Sunburn [Unknown]
  - Photosensitivity reaction [Unknown]
  - Transaminases increased [Unknown]
